FAERS Safety Report 10741629 (Version 4)
Quarter: 2015Q1

REPORT INFORMATION
  Report Type: Spontaneous
  Country: US (occurrence: None)
  Receive Date: 20150123
  Receipt Date: 20150323
  Transmission Date: 20150721
  Serious: Yes (Other)
  Sender: FDA-Public Use
  Company Number: 2015JUB00012

PATIENT
  Age: 50 Year
  Sex: Female
  Weight: 43.5 kg

DRUGS (5)
  1. LORTAB [Concomitant]
     Active Substance: ACETAMINOPHEN\HYDROCODONE BITARTRATE
  2. COLD AND FLU MEDICATIONS [Concomitant]
  3. FLEXERIL [Concomitant]
     Active Substance: CYCLOBENZAPRINE HYDROCHLORIDE
  4. ANTIBIOTICS [Concomitant]
     Active Substance: UNSPECIFIED INGREDIENT
  5. PREDNISONE. [Suspect]
     Active Substance: PREDNISONE
     Indication: CHRONIC OBSTRUCTIVE PULMONARY DISEASE
     Dosage: 1X/DAY
     Dates: start: 2000

REACTIONS (35)
  - Dysphonia [None]
  - Paraesthesia [None]
  - Skin atrophy [None]
  - Cough [None]
  - Irritability [None]
  - Skeletal injury [None]
  - Rosacea [None]
  - Increased tendency to bruise [None]
  - Weight increased [None]
  - Aphonia [None]
  - Arthropathy [None]
  - Movement disorder [None]
  - Pain [None]
  - Glaucoma [None]
  - Loss of libido [None]
  - Myalgia [None]
  - Increased appetite [None]
  - Skin discolouration [None]
  - Rib fracture [None]
  - Osteopenia [None]
  - Restless legs syndrome [None]
  - Feeling abnormal [None]
  - Abasia [None]
  - Cushing^s syndrome [None]
  - Fat tissue increased [None]
  - Arthritis [None]
  - Skin exfoliation [None]
  - Hypoaesthesia [None]
  - Eye operation [None]
  - Myopathy [None]
  - Nerve injury [None]
  - Peripheral swelling [None]
  - Hair growth abnormal [None]
  - Body height decreased [None]
  - Memory impairment [None]
